FAERS Safety Report 9572424 (Version 1)
Quarter: 2013Q3

REPORT INFORMATION
  Report Type: Spontaneous
  Country: GB (occurrence: None)
  Receive Date: 20130927
  Receipt Date: 20130927
  Transmission Date: 20140515
  Serious: Yes (Disabling, Other)
  Sender: FDA-Public Use
  Company Number: AUR-APL-2013-07890

PATIENT
  Age: 70 Year
  Sex: Female

DRUGS (1)
  1. SERTRALINE [Suspect]
     Indication: PRODUCT USED FOR UNKNOWN INDICATION
     Route: 048
     Dates: start: 20130905, end: 20130907

REACTIONS (2)
  - Tremor [None]
  - Emotional distress [None]
